FAERS Safety Report 5353009-8 (Version None)
Quarter: 2007Q2

REPORT INFORMATION
  Report Type: 
  Country: None (occurrence: None)
  Receive Date: 20070606
  Receipt Date: 20070522
  Transmission Date: 20071010
  Serious: Yes (Other)
  Sender: FDA-Public Use
  Company Number: TCI2007A02014

PATIENT
  Age: 49 Year
  Sex: Male

DRUGS (4)
  1. ACTOS [Suspect]
     Indication: DIABETES MELLITUS
     Dosage: SEE IMAGE
     Route: 048
     Dates: start: 20061012, end: 20061130
  2. ACTOS [Suspect]
     Indication: DIABETES MELLITUS
     Dosage: SEE IMAGE
     Route: 048
     Dates: start: 20070201, end: 20070322
  3. METFORMIN HYDROCHLORIDE [Concomitant]
  4. AMARYL [Concomitant]

REACTIONS (3)
  - AGRANULOCYTOSIS [None]
  - BONE MARROW FAILURE [None]
  - LEUKOPENIA [None]
